FAERS Safety Report 7816315-0 (Version None)
Quarter: 2011Q4

REPORT INFORMATION
  Report Type: 
  Country: None (occurrence: None)
  Receive Date: 20111017
  Receipt Date: 20111004
  Transmission Date: 20120403
  Serious: Yes (Hospitalization, Other)
  Sender: FDA-Public Use
  Company Number: JP-AMGEN-JPNSP2011049224

PATIENT
  Age: 76 Year
  Sex: Female

DRUGS (5)
  1. LENDORMIN [Concomitant]
     Dosage: 0.25 MG, 1X/DAY
     Route: 048
  2. ENBREL [Suspect]
     Indication: RHEUMATOID ARTHRITIS
     Dosage: 25 MG, QWK
     Route: 058
     Dates: start: 20070101
  3. RISEDRONATE SODIUM [Concomitant]
     Dosage: 2.5 MG, 1X/DAY
     Route: 048
  4. ROHYPNOL [Concomitant]
     Dosage: 2 MG, 1X/DAY
     Route: 048
  5. RHEUMATREX [Suspect]
     Indication: RHEUMATOID ARTHRITIS
     Dosage: UNK
     Route: 048
     Dates: start: 20070101

REACTIONS (3)
  - ACUTE LUNG INJURY [None]
  - DECREASED APPETITE [None]
  - PNEUMONIA CHLAMYDIAL [None]
